FAERS Safety Report 9921797 (Version 1)
Quarter: 2014Q1

REPORT INFORMATION
  Report Type: Spontaneous
  Country: JP (occurrence: JP)
  Receive Date: 20140225
  Receipt Date: 20140225
  Transmission Date: 20141002
  Serious: Yes (Hospitalization)
  Sender: FDA-Public Use
  Company Number: JP-MYLANLABS-2014S1003622

PATIENT
  Age: 75 Year
  Sex: Female
  Weight: 42.5 kg

DRUGS (9)
  1. LANSOPRAZOLE [Suspect]
     Indication: GASTRITIS EROSIVE
     Dosage: 30 MG/DAY (1 TABLET)
     Route: 065
     Dates: start: 20090121, end: 2011
  2. LANSOPRAZOLE [Suspect]
     Indication: OFF LABEL USE
     Dosage: 30 MG/DAY (1 TABLET)
     Route: 065
     Dates: start: 20090121, end: 2011
  3. AZELNIDIPINE [Concomitant]
     Dosage: 16 MG/DAY (1 TABLET)
     Route: 065
  4. VALSARTAN [Concomitant]
     Dosage: 80 MG/DAY (1 TABLET)
     Route: 065
  5. HYDROCHLOROTHIAZIDE W/LOSARTAN [Concomitant]
     Dosage: 1 TABLET/DAY
     Route: 065
  6. ALFACALCIDOL [Concomitant]
     Dosage: 0.25 MG/DAY (2 TABLETS)
     Route: 065
  7. RALOXIFENE [Concomitant]
     Dosage: 60 MG/DAY (1 TABLET)
     Route: 065
  8. URSODEOXYCHOLIC ACID [Concomitant]
     Dosage: 100 MG/DAY (2 TABLETS 3X DAILY)
     Route: 065
  9. PARACETAMOL [Concomitant]
     Dosage: 1 G/DAY (1 PACKET OF 50% 3X DAILY)
     Route: 065

REACTIONS (5)
  - Diarrhoea [Recovered/Resolved]
  - Colitis microscopic [Recovered/Resolved]
  - Weight decreased [Unknown]
  - Hepatic encephalopathy [Recovered/Resolved]
  - Condition aggravated [Recovered/Resolved]
